FAERS Safety Report 6109696-X (Version None)
Quarter: 2009Q1

REPORT INFORMATION
  Report Type: 
  Country: None (occurrence: None)
  Receive Date: 20090310
  Receipt Date: 20080228
  Transmission Date: 20090719
  Serious: No
  Sender: FDA-Public Use
  Company Number: A0712321A

PATIENT
  Age: 49 Year
  Sex: Female

DRUGS (1)
  1. NICORETTE [Suspect]
     Dates: start: 20080226, end: 20080226

REACTIONS (4)
  - COUGH [None]
  - MALAISE [None]
  - PAIN [None]
  - THROAT IRRITATION [None]
